FAERS Safety Report 7660035-2 (Version None)
Quarter: 2011Q3

REPORT INFORMATION
  Report Type: 
  Country: None (occurrence: None)
  Receive Date: 20110805
  Receipt Date: 20110725
  Transmission Date: 20111222
  Serious: Yes (Life-Threatening, Hospitalization, Other)
  Sender: FDA-Public Use
  Company Number: FR-UCBSA-036432

PATIENT
  Sex: Male
  Weight: 72 kg

DRUGS (8)
  1. CRESTOR [Concomitant]
     Dosage: 10 MG
  2. KEPPRA [Concomitant]
     Dates: start: 20110401
  3. PANTOPRAZOLE SODIUM [Concomitant]
     Route: 048
  4. VIMPAT [Suspect]
     Indication: EPILEPSY
     Dates: start: 20110618, end: 20110625
  5. MEROPENEM [Concomitant]
     Indication: ABSCESS
     Dates: start: 20110415
  6. PREDNISONE [Concomitant]
     Indication: ABSCESS
  7. XYZAL [Suspect]
     Indication: DERMATITIS ALLERGIC
     Dosage: 1 TABLET DAILY
     Dates: start: 20110621, end: 20110625
  8. UNSPECIFIED ANTIBIOTIC [Concomitant]
     Route: 048

REACTIONS (2)
  - AGRANULOCYTOSIS [None]
  - INFLUENZA LIKE ILLNESS [None]
